FAERS Safety Report 25720183 (Version 1)
Quarter: 2025Q3

REPORT INFORMATION
  Report Type: Spontaneous
  Country: US (occurrence: US)
  Receive Date: 20250825
  Receipt Date: 20250825
  Transmission Date: 20251020
  Serious: No
  Sender: UROGEN PHARMA
  Company Number: US-UROGEN PHARMA LTD.-2025-UGN-000122

PATIENT

DRUGS (4)
  1. JELMYTO [Suspect]
     Active Substance: MITOMYCIN
     Indication: Transitional cell cancer of the renal pelvis and ureter
     Dosage: 28 MILLIGRAM, ONCE A WEEK (INSTALLATION)
     Dates: start: 20250617, end: 20250617
  2. JELMYTO [Suspect]
     Active Substance: MITOMYCIN
     Dosage: 28 MILLIGRAM, ONCE A WEEK (INSTALLATION)
     Dates: start: 20250624, end: 20250624
  3. JELMYTO [Suspect]
     Active Substance: MITOMYCIN
     Dosage: 28 MILLIGRAM, ONCE A WEEK (INSTALLATION)
     Dates: start: 20250701, end: 20250701
  4. KEYTRUDA [Concomitant]
     Active Substance: PEMBROLIZUMAB
     Indication: Product used for unknown indication
     Route: 065

REACTIONS (4)
  - Muscular weakness [Unknown]
  - Chromaturia [Unknown]
  - Asthenia [Unknown]
  - Fatigue [Unknown]

NARRATIVE: CASE EVENT DATE: 20250601
